FAERS Safety Report 9160686 (Version 4)
Quarter: 2013Q3

REPORT INFORMATION
  Report Type: Report from Study
  Country: JP (occurrence: JP)
  Receive Date: 20130313
  Receipt Date: 20130923
  Transmission Date: 20140515
  Serious: Yes (Death)
  Sender: FDA-Public Use
  Company Number: JP-B.I. PHARMACEUTICALS,INC./RIDGEFIELD-2013-BI-06817NB

PATIENT
  Age: 87 Year
  Sex: Male
  Weight: 57 kg

DRUGS (11)
  1. PRAZAXA [Suspect]
     Indication: ATRIAL FIBRILLATION
     Dosage: 220 MG
     Route: 048
     Dates: start: 20120309
  2. PRAZAXA [Suspect]
     Indication: CEREBROVASCULAR ACCIDENT PROPHYLAXIS
  3. PRAZAXA [Suspect]
     Indication: PROPHYLAXIS
  4. DIOVAN [Concomitant]
     Dosage: 80 MG
     Route: 048
  5. NORVASC [Concomitant]
     Dosage: 2.5 MG
     Route: 048
  6. MAINTATE [Concomitant]
     Indication: ATRIAL FIBRILLATION
     Dosage: 1.25 MG
     Route: 048
     Dates: start: 20120309
  7. ALDACTONE A [Concomitant]
     Indication: HYPERTENSION
     Dosage: 25 MG
     Route: 048
     Dates: start: 20120309, end: 20120803
  8. SELARA [Concomitant]
     Indication: HYPERTENSION
     Dosage: 50 MG
     Route: 048
     Dates: start: 20120803
  9. NATRIX [Concomitant]
     Dosage: 0.5 MG
     Route: 048
  10. DIART [Concomitant]
     Indication: CARDIAC FAILURE
     Dosage: 15 MG
     Route: 048
     Dates: start: 20120831
  11. NATRIX [Concomitant]
     Dosage: 0.5 MG
     Route: 048

REACTIONS (1)
  - Asphyxia [Fatal]
